FAERS Safety Report 8242987-5 (Version None)
Quarter: 2012Q1

REPORT INFORMATION
  Report Type: 
  Country: None (occurrence: None)
  Receive Date: 20120329
  Receipt Date: 20120323
  Transmission Date: 20120608
  Serious: Yes (Other)
  Sender: FDA-Public Use
  Company Number: US-PFIZER INC-2012076156

PATIENT
  Age: 58 Year
  Sex: Male
  Weight: 98.866 kg

DRUGS (4)
  1. LISINOPRIL [Concomitant]
     Indication: HYPERTENSION
     Dosage: UNK
  2. CELEBREX [Suspect]
     Indication: FIBROMYALGIA
  3. METOPROLOL [Concomitant]
     Indication: HYPERTENSION
     Dosage: UNK
  4. CELEBREX [Suspect]
     Indication: ARTHRITIS
     Dosage: 200 MG, DAILY

REACTIONS (5)
  - ATRIAL FIBRILLATION [None]
  - DYSPEPSIA [None]
  - DISCOMFORT [None]
  - FLATULENCE [None]
  - ABDOMINAL DISTENSION [None]
